FAERS Safety Report 8523278-1 (Version None)
Quarter: 2012Q3

REPORT INFORMATION
  Report Type: 
  Country: None (occurrence: None)
  Receive Date: 20120713
  Receipt Date: 20120713
  Transmission Date: 20120928
  Serious: Yes (Hospitalization)
  Sender: FDA-Public Use
  Company Number: None

PATIENT
  Age: 36 Year
  Sex: Female
  Weight: 49.4421 kg

DRUGS (2)
  1. BENADRYL [Suspect]
     Indication: SLEEP DISORDER
     Dates: start: 20120711, end: 20120712
  2. DIFLUCAN [Suspect]
     Indication: FUNGAL INFECTION
     Dates: start: 20120712, end: 20120712

REACTIONS (5)
  - VISUAL ACUITY REDUCED [None]
  - PALPITATIONS [None]
  - DISSOCIATION [None]
  - DIZZINESS [None]
  - PARAESTHESIA [None]
